FAERS Safety Report 24819187 (Version 1)
Quarter: 2025Q1

REPORT INFORMATION
  Report Type: Spontaneous
  Country: US (occurrence: US)
  Receive Date: 20250108
  Receipt Date: 20250108
  Transmission Date: 20250409
  Serious: Yes (Other)
  Sender: RANBAXY
  Company Number: US-SUN PHARMACEUTICAL INDUSTRIES LTD-2024R1-488067

PATIENT
  Age: 53 Year
  Sex: Female

DRUGS (4)
  1. BUDESONIDE [Suspect]
     Active Substance: BUDESONIDE
     Indication: Colitis
     Route: 065
  2. MESALAMINE [Suspect]
     Active Substance: MESALAMINE
     Indication: Colitis
     Route: 065
  3. CHOLESTYRAMINE [Suspect]
     Active Substance: CHOLESTYRAMINE
     Indication: Colitis
     Route: 065
  4. COLESEVELAM [Suspect]
     Active Substance: COLESEVELAM
     Indication: Colitis
     Route: 065

REACTIONS (3)
  - Clostridium difficile colitis [Unknown]
  - Gastroenteritis [Unknown]
  - Therapy non-responder [Unknown]
